FAERS Safety Report 7564388-5 (Version None)
Quarter: 2011Q2

REPORT INFORMATION
  Report Type: 
  Country: None (occurrence: None)
  Receive Date: 20110622
  Receipt Date: 20110610
  Transmission Date: 20111010
  Serious: Yes (Other)
  Sender: FDA-Public Use
  Company Number: PHHY2011JP52064

PATIENT
  Sex: Female

DRUGS (7)
  1. LASIX [Concomitant]
  2. MIGLITOL [Concomitant]
     Route: 048
  3. ALESION [Concomitant]
     Route: 048
  4. DIOVAN HCT [Suspect]
     Dosage: 1 DF, UNK
     Route: 048
  5. WARFARIN SODIUM [Concomitant]
     Route: 048
  6. LANSOPRAZOLE [Concomitant]
  7. ISOSORBIDE DINITRATE [Concomitant]
     Route: 048

REACTIONS (1)
  - VISUAL IMPAIRMENT [None]
